FAERS Safety Report 4370706-1 (Version None)
Quarter: 2004Q2

REPORT INFORMATION
  Report Type: 
  Country: None (occurrence: None)
  Receive Date: 20040601
  Receipt Date: 20040520
  Transmission Date: 20050107
  Serious: Yes (Hospitalization)
  Sender: FDA-Public Use
  Company Number: GBWYE775421MAY04

PATIENT
  Age: 73 Year
  Sex: Male

DRUGS (7)
  1. ADVIL [Suspect]
     Indication: MUSCULOSKELETAL PAIN
     Dosage: 400 MG 3X PER 1 DAY, ORAL
     Route: 048
     Dates: start: 20040505
  2. ASPIRIN (ACETYLSALICYLIC ACID, UNSPEC, O) [Suspect]
     Dosage: 75 MG 1X PER 1 DAY, ORAL
     Route: 048
  3. DICLOFENAC (DICLOFENAC, O) [Suspect]
     Dosage: 50 MG 3X PER 1 DAY, ORAL
     Route: 048
     Dates: start: 20040505
  4. AMLODIPINE (AMLODIPINE) [Concomitant]
  5. BENDROFLUAZIDE (BENDROFLUMETHIAZIDE) [Concomitant]
  6. NOVOLOG [Concomitant]
  7. METFORMIN HCL [Concomitant]

REACTIONS (1)
  - OESOPHAGEAL ULCER HAEMORRHAGE [None]
